FAERS Safety Report 9097610 (Version 12)
Quarter: 2013Q4

REPORT INFORMATION
  Report Type: Report from Study
  Country: DE (occurrence: DE)
  Receive Date: 20130212
  Receipt Date: 20131105
  Transmission Date: 20140711
  Serious: Yes (Death, Hospitalization)
  Sender: FDA-Public Use
  Company Number: PHHY2013DE012867

PATIENT
  Sex: Female
  Weight: 57 kg

DRUGS (11)
  1. AFINITOR [Suspect]
     Indication: BREAST CANCER METASTATIC
     Dosage: 10 MG, QD
     Route: 048
     Dates: start: 20130115, end: 20130127
  2. AFINITOR [Suspect]
     Dosage: 5 MG, QD
     Route: 048
     Dates: start: 20130129, end: 20130130
  3. EXEMESTANE [Concomitant]
     Indication: BREAST CANCER METASTATIC
     Dosage: 25 MG, QD
     Route: 048
     Dates: start: 20130115, end: 20130125
  4. EXEMESTANE [Concomitant]
     Dosage: 25 MG, QD
     Route: 048
     Dates: start: 20130129, end: 20130207
  5. DENOSUMAB [Concomitant]
     Dosage: 120 MG, QMO
     Dates: start: 201206
  6. VELAFAX [Concomitant]
     Dates: start: 201211
  7. METFORMIN [Concomitant]
     Dates: start: 201211
  8. ATENOLOL [Concomitant]
     Dates: start: 201211
  9. PANTOZOL [Concomitant]
     Dates: start: 201211
  10. CALCIUM [Concomitant]
     Dosage: 500 MG, DAILY
     Dates: start: 201206
  11. VIT D [Concomitant]
     Dosage: 400 IU, DAILY
     Dates: start: 201206

REACTIONS (9)
  - General physical health deterioration [Fatal]
  - Weight decreased [Fatal]
  - Decreased appetite [Fatal]
  - Dehydration [Fatal]
  - Diarrhoea [Fatal]
  - Breast cancer metastatic [Fatal]
  - Malignant neoplasm progression [Fatal]
  - Stomatitis [Recovered/Resolved]
  - Gastritis [Recovered/Resolved]
